FAERS Safety Report 8510093-8 (Version None)
Quarter: 2012Q2

REPORT INFORMATION
  Report Type: 
  Country: None (occurrence: None)
  Receive Date: 20120405
  Receipt Date: 20090714
  Transmission Date: 20120825
  Serious: Yes (Hospitalization, Other)
  Sender: FDA-Public Use
  Company Number: PHEH2009US07175

PATIENT
  Age: 64 Year
  Sex: Female
  Weight: 112.5 kg

DRUGS (5)
  1. OXYTROL [Concomitant]
  2. HYDRODIURIL [Concomitant]
  3. RECLAST [Suspect]
     Indication: OSTEOPENIA
     Dosage: 5 MG YEARLY, INTRAVENOUS
     Route: 042
     Dates: start: 20090626
  4. ZOLOFT [Concomitant]
  5. LISINOPRIL [Concomitant]

REACTIONS (6)
  - MUSCLE SPASMS [None]
  - EYE IRRITATION [None]
  - MUSCULAR WEAKNESS [None]
  - ERYTHEMA [None]
  - HYPOCALCAEMIA [None]
  - MYALGIA [None]
